FAERS Safety Report 6076317-4 (Version None)
Quarter: 2009Q1

REPORT INFORMATION
  Report Type: 
  Country: None (occurrence: None)
  Receive Date: 20090209
  Receipt Date: 20090122
  Transmission Date: 20090719
  Serious: Yes (Hospitalization)
  Sender: FDA-Public Use
  Company Number: 230794K09USA

PATIENT
  Age: 72 Year
  Sex: Female
  Weight: 116 kg

DRUGS (9)
  1. REBIF [Suspect]
     Indication: MULTIPLE SCLEROSIS
     Dosage: 44 MCG, 3 IN 1 WEEKS, SUBCUTANEOUS
     Route: 058
     Dates: start: 20030129
  2. METOPROLOL TARTRATE [Concomitant]
  3. SIMVASTATIN [Concomitant]
  4. LISINOPRIL (LISINORPIL) [Concomitant]
  5. HYDRALAZINE HCL [Concomitant]
  6. PAXIL [Concomitant]
  7. POTASSIUM CHLORIDE [Concomitant]
  8. TOLTERODINE TARTRATE (TOLTERODINE L-TARTRATE) [Concomitant]
  9. AMLODIPINE BESYLATE [Concomitant]

REACTIONS (1)
  - MIGRAINE [None]
